FAERS Safety Report 10523409 (Version 1)
Quarter: 2014Q4

REPORT INFORMATION
  Report Type: Spontaneous
  Country: GB (occurrence: GB)
  Receive Date: 20141016
  Receipt Date: 20141016
  Transmission Date: 20150528
  Serious: Yes (Hospitalization, Other)
  Sender: FDA-Public Use
  Company Number: GB-ABBVIE-14K-167-1295237-00

PATIENT
  Age: 62 Year
  Sex: Female

DRUGS (1)
  1. HUMIRA [Suspect]
     Active Substance: ADALIMUMAB
     Indication: PRODUCT USED FOR UNKNOWN INDICATION
     Route: 065

REACTIONS (5)
  - Oral discomfort [Unknown]
  - Gingival ulceration [Unknown]
  - Diverticulitis [Unknown]
  - Mouth ulceration [Unknown]
  - Dry mouth [Unknown]

NARRATIVE: CASE EVENT DATE: 201304
